FAERS Safety Report 18251681 (Version 1)
Quarter: 2020Q3

REPORT INFORMATION
  Report Type: Spontaneous
  Country: CA (occurrence: CA)
  Receive Date: 20200910
  Receipt Date: 20200910
  Transmission Date: 20201103
  Serious: Yes (Other)
  Sender: FDA-Public Use
  Company Number: CA-ACCORD-199813

PATIENT
  Sex: Female

DRUGS (4)
  1. SULFASALAZINE. [Concomitant]
     Active Substance: SULFASALAZINE
     Dosage: EVERY 1 DAYS
     Route: 048
  2. MELOXICAM. [Concomitant]
     Active Substance: MELOXICAM
  3. LEFLUNOMIDE. [Concomitant]
     Active Substance: LEFLUNOMIDE
  4. METHOTREXATE. [Suspect]
     Active Substance: METHOTREXATE
     Indication: PRODUCT USED FOR UNKNOWN INDICATION
     Dosage: 1 EVERY 1 WEEKS
     Route: 058

REACTIONS (4)
  - Nausea [Unknown]
  - Product use issue [Unknown]
  - Drug ineffective [Unknown]
  - Rheumatoid arthritis [Unknown]
